FAERS Safety Report 11660075 (Version 2)
Quarter: 2015Q4

REPORT INFORMATION
  Report Type: Spontaneous
  Country: JP (occurrence: JP)
  Receive Date: 20151026
  Receipt Date: 20151109
  Transmission Date: 20160304
  Serious: Yes (Other)
  Sender: FDA-Public Use
  Company Number: JP-TEVA-604273ISR

PATIENT
  Age: 10 Year
  Sex: Male

DRUGS (7)
  1. CYCLOPHOSPHAMIDE. [Suspect]
     Active Substance: CYCLOPHOSPHAMIDE
     Indication: MEDULLOBLASTOMA
  2. ETOPOSIDE. [Suspect]
     Active Substance: ETOPOSIDE
     Indication: MEDULLOBLASTOMA
  3. MELPHALAN [Suspect]
     Active Substance: MELPHALAN
     Indication: MEDULLOBLASTOMA
  4. METHOTREXATE SODIUM. [Suspect]
     Active Substance: METHOTREXATE SODIUM
     Indication: MEDULLOBLASTOMA
  5. CISPLATIN. [Suspect]
     Active Substance: CISPLATIN
     Indication: MEDULLOBLASTOMA
  6. VINCRISTINE [Suspect]
     Active Substance: VINCRISTINE
     Indication: MEDULLOBLASTOMA
  7. THIOTEPA. [Suspect]
     Active Substance: THIOTEPA
     Indication: MEDULLOBLASTOMA

REACTIONS (2)
  - Second primary malignancy [Recovered/Resolved]
  - Osteosarcoma [Recovered/Resolved]
